FAERS Safety Report 9147400 (Version 1)
Quarter: 2013Q1

REPORT INFORMATION
  Report Type: Spontaneous
  Country: US (occurrence: US)
  Receive Date: 20130307
  Receipt Date: 20130307
  Transmission Date: 20140127
  Serious: Yes (Other)
  Sender: FDA-Public Use
  Company Number: US-INCYTE CORPORATION-2012IN000946

PATIENT
  Sex: Female

DRUGS (8)
  1. JAKAFI [Suspect]
     Indication: MYELOFIBROSIS
     Dosage: 20 MG, BID
     Route: 048
     Dates: start: 201203, end: 2012
  2. JAKAFI [Suspect]
     Indication: SPLENOMEGALY
     Dosage: 25 MG, BID
     Route: 048
     Dates: start: 2012
  3. JAKAFI [Suspect]
     Dosage: 20 MG, BID
  4. TOPROL XL [Concomitant]
     Dosage: 50 MG, QD
  5. PREDNISONE [Concomitant]
     Dosage: 10 MG, QD
  6. XANAX [Concomitant]
     Dosage: UNK, BID
  7. PERCOCET [Concomitant]
     Dosage: UNK, BID
  8. TYLENOL [Concomitant]

REACTIONS (2)
  - Abasia [Unknown]
  - Pain in extremity [Not Recovered/Not Resolved]
